FAERS Safety Report 9463979 (Version 2)
Quarter: 2013Q3

REPORT INFORMATION
  Report Type: Spontaneous
  Country: US (occurrence: US)
  Receive Date: 20130819
  Receipt Date: 20130819
  Transmission Date: 20140515
  Serious: No
  Sender: FDA-Public Use
  Company Number: US-BRISTOL-MYERS SQUIBB COMPANY-17038563

PATIENT
  Age: 52 Year
  Sex: Female
  Weight: 72.56 kg

DRUGS (3)
  1. REYATAZ [Suspect]
     Indication: HIV INFECTION
     Dosage: DURATN: 5 TO 6 MNTHS
     Route: 048
  2. NORVIR [Suspect]
  3. TRUVADA [Suspect]

REACTIONS (4)
  - Pruritus [Unknown]
  - Paraesthesia [Unknown]
  - Swelling face [Unknown]
  - Skin hypopigmentation [Unknown]
